FAERS Safety Report 9682306 (Version 2)
Quarter: 2013Q4

REPORT INFORMATION
  Report Type: Spontaneous
  Country: BR (occurrence: BR)
  Receive Date: 20131112
  Receipt Date: 20131209
  Transmission Date: 20140711
  Serious: Yes (Hospitalization)
  Sender: FDA-Public Use
  Company Number: BR-BIOGENIDEC-2013BI106265

PATIENT
  Age: 38 Year
  Sex: Female

DRUGS (10)
  1. TYSABRI [Suspect]
     Indication: MULTIPLE SCLEROSIS
     Route: 042
     Dates: start: 201108, end: 20130923
  2. ALLESTRA [Concomitant]
  3. FLUOXETINE [Concomitant]
  4. COMPOUNDED DRUG WITH SODIUM PANTOTHENATE [Concomitant]
  5. CYSTINE [Concomitant]
  6. THIAMIN [Concomitant]
  7. KERATIN [Concomitant]
  8. AMINOBENZOIC ACID [Concomitant]
  9. YEAST [Concomitant]
  10. VITAMIN D [Concomitant]

REACTIONS (2)
  - Venous thrombosis [Unknown]
  - Pulmonary embolism [Unknown]
